FAERS Safety Report 9784276 (Version 1)
Quarter: 2013Q4

REPORT INFORMATION
  Report Type: Spontaneous
  Country: FR (occurrence: FR)
  Receive Date: 20131226
  Receipt Date: 20131226
  Transmission Date: 20140711
  Serious: Yes (Hospitalization, Other)
  Sender: FDA-Public Use
  Company Number: FR-BAXTER-2013BAX051503

PATIENT
  Age: 3 Year
  Sex: Female
  Weight: 16.8 kg

DRUGS (9)
  1. CELLTOP_ETOPOSIDE 20.00 MG/ML_SOLUTION FOR INJECTION_VIAL, GLASS [Suspect]
     Indication: CHOROID PLEXUS CARCINOMA
     Route: 042
     Dates: start: 20131126, end: 20131127
  2. UROMITEXAN 1 G/10 ML, SOLUTION INJECTABLE POUR PERFUSION EN FLACON [Suspect]
     Indication: CHOROID PLEXUS CARCINOMA
     Route: 042
     Dates: start: 20131126, end: 20131127
  3. IFOSFAMIDE EG [Suspect]
     Indication: CHOROID PLEXUS CARCINOMA
     Route: 042
     Dates: start: 20131126, end: 20131127
  4. PLITICAN [Suspect]
     Indication: PRODUCT USED FOR UNKNOWN INDICATION
     Route: 042
     Dates: start: 20131126, end: 20131128
  5. ONDANSETRON [Suspect]
     Indication: PRODUCT USED FOR UNKNOWN INDICATION
     Route: 065
  6. CARBOPLATINE [Suspect]
     Indication: CHOROID PLEXUS CARCINOMA
     Route: 065
     Dates: start: 20131128, end: 20131128
  7. BACTRIM [Concomitant]
     Indication: PRODUCT USED FOR UNKNOWN INDICATION
     Route: 048
     Dates: start: 20130926
  8. PAROEX [Concomitant]
     Indication: DENTAL DISORDER PROPHYLAXIS
     Route: 065
     Dates: start: 20131126
  9. FUNGIZONE [Concomitant]
     Indication: DENTAL DISORDER PROPHYLAXIS
     Route: 065
     Dates: start: 20131126

REACTIONS (1)
  - Encephalopathy [Recovered/Resolved]
